FAERS Safety Report 7667906-1 (Version None)
Quarter: 2011Q3

REPORT INFORMATION
  Report Type: 
  Country: None (occurrence: None)
  Receive Date: 20110808
  Receipt Date: 20110728
  Transmission Date: 20111222
  Serious: Yes (Hospitalization)
  Sender: FDA-Public Use
  Company Number: US-BIOGENIDEC-2010BI020411

PATIENT
  Age: 54 Year
  Sex: Female

DRUGS (2)
  1. AMINOPYRIDINE [Concomitant]
     Indication: BALANCE DISORDER
  2. TYSABRI [Suspect]
     Indication: MULTIPLE SCLEROSIS
     Route: 042
     Dates: start: 20090804

REACTIONS (6)
  - BALANCE DISORDER [None]
  - PAIN [None]
  - DEPRESSED MOOD [None]
  - FALL [None]
  - FATIGUE [None]
  - CONVULSION [None]
